FAERS Safety Report 4338213-X (Version None)
Quarter: 2004Q1

REPORT INFORMATION
  Report Type: 
  Country: None (occurrence: None)
  Receive Date: 20040329
  Receipt Date: 20040209
  Transmission Date: 20041129
  Serious: No
  Sender: FDA-Public Use
  Company Number: USA040258920

PATIENT
  Age: 9 Year
  Sex: Male
  Weight: 31 kg

DRUGS (3)
  1. STRATTERA [Suspect]
     Indication: ATTENTION DEFICIT/HYPERACTIVITY DISORDER
     Dosage: 25 MG/DAY
     Route: 048
     Dates: start: 20030901
  2. ZYRTEC [Concomitant]
  3. PREVACID [Concomitant]

REACTIONS (2)
  - RETCHING [None]
  - VOMITING [None]
